FAERS Safety Report 22709745 (Version 7)
Quarter: 2023Q4

REPORT INFORMATION
  Report Type: Spontaneous
  Country: CA (occurrence: CA)
  Receive Date: 20230717
  Receipt Date: 20231230
  Transmission Date: 20240109
  Serious: Yes (Hospitalization, Other)
  Sender: FDA-Public Use
  Company Number: CA-CELLTRION INC.-2022CA018811

PATIENT

DRUGS (13)
  1. INFLECTRA [Suspect]
     Active Substance: INFLIXIMAB-DYYB
     Indication: Colitis ulcerative
     Dosage: 5 MG/KG, INDUCTION WEEKS 0, 2, 6 THEN MAINTENANCE EVERY 8 WEEKS  HOSPITAL START
     Route: 042
     Dates: start: 20221003, end: 20230707
  2. INFLECTRA [Suspect]
     Active Substance: INFLIXIMAB-DYYB
     Dosage: 5 MG/KG, INDUCTION WEEKS 0, 2, 6 THEN MAINTENANCE EVERY 8 WEEKS  HOSPITAL START
     Route: 042
     Dates: start: 20221026
  3. INFLECTRA [Suspect]
     Active Substance: INFLIXIMAB-DYYB
     Dosage: 5 MG/KG, INDUCTION WEEKS 0, 2, 6 THEN MAINTENANCE EVERY 8 WEEKS  HOSPITAL START
     Route: 042
     Dates: start: 20221123
  4. INFLECTRA [Suspect]
     Active Substance: INFLIXIMAB-DYYB
     Dosage: 5 MG/KG, INDUCTION WEEKS 0, 2, 6 THEN MAINTENANCE EVERY 8 WEEKS  HOSPITAL START
     Route: 042
     Dates: start: 20230512
  5. INFLECTRA [Suspect]
     Active Substance: INFLIXIMAB-DYYB
     Dosage: 10 MG/KG, EVERY 4 WEEKS
     Route: 042
     Dates: start: 20230731
  6. INFLECTRA [Suspect]
     Active Substance: INFLIXIMAB-DYYB
     Dosage: 760 MG (10 MG/KG) AFTER 7 WEEKS
     Route: 042
     Dates: start: 20230831
  7. INFLECTRA [Suspect]
     Active Substance: INFLIXIMAB-DYYB
     Dosage: 800 MG, (10 MG/KG), EVERY 4 WEEKS
     Route: 042
     Dates: start: 20231027
  8. INFLECTRA [Suspect]
     Active Substance: INFLIXIMAB-DYYB
     Dosage: 10 MG/KG, EVERY 4 WEEKS
     Route: 042
     Dates: start: 20231124
  9. INFLECTRA [Suspect]
     Active Substance: INFLIXIMAB-DYYB
     Dosage: 800 MG, (10 MG/KG), EVERY 4 WEEKS
     Route: 042
     Dates: start: 20231222
  10. ACETAMINOPHEN [Concomitant]
     Active Substance: ACETAMINOPHEN
     Indication: Premedication
     Dosage: 650 MG
     Dates: start: 20231027, end: 20231027
  11. CA [CALCIUM] [Concomitant]
     Dosage: UNK, ON WEANING
  12. SOLU-MEDROL [Concomitant]
     Active Substance: METHYLPREDNISOLONE SODIUM SUCCINATE
     Dosage: UNK, 5 DAYS
     Dates: start: 20230731
  13. CHOLECALCIFEROL [Concomitant]
     Active Substance: CHOLECALCIFEROL
     Dosage: UNK, ON WEANING

REACTIONS (9)
  - Pyoderma gangrenosum [Not Recovered/Not Resolved]
  - Condition aggravated [Recovering/Resolving]
  - Therapeutic response shortened [Not Recovered/Not Resolved]
  - COVID-19 [Recovered/Resolved]
  - Off label use [Unknown]
  - Inappropriate schedule of product administration [Unknown]
  - Headache [Recovered/Resolved]
  - Fatigue [Recovered/Resolved]
  - Blood pressure decreased [Not Recovered/Not Resolved]

NARRATIVE: CASE EVENT DATE: 20221001
